FAERS Safety Report 13245502 (Version 1)
Quarter: 2017Q1

REPORT INFORMATION
  Report Type: Spontaneous
  Country: US (occurrence: US)
  Receive Date: 20170217
  Receipt Date: 20170217
  Transmission Date: 20170428
  Serious: Yes (Other)
  Sender: FDA-Public Use
  Company Number: US-BAYER-2017-029352

PATIENT
  Sex: Female

DRUGS (2)
  1. MIRENA [Suspect]
     Active Substance: LEVONORGESTREL
     Dosage: 20 MCG/24HR, CONT
     Route: 015
  2. MIRENA [Suspect]
     Active Substance: LEVONORGESTREL
     Dosage: 20 MCG/24HR, CONT
     Route: 015

REACTIONS (7)
  - Abdominal pain lower [None]
  - Abdominal pain lower [Recovered/Resolved]
  - Embedded device [Unknown]
  - Coital bleeding [Recovered/Resolved]
  - Depressed mood [Unknown]
  - Genital haemorrhage [Unknown]
  - Pelvic pain [Unknown]
